FAERS Safety Report 7609369-8 (Version None)
Quarter: 2011Q3

REPORT INFORMATION
  Report Type: 
  Country: None (occurrence: None)
  Receive Date: 20110714
  Receipt Date: 20110707
  Transmission Date: 20111222
  Serious: Yes (Other)
  Sender: FDA-Public Use
  Company Number: PHHY2011AU60526

PATIENT
  Sex: Female

DRUGS (4)
  1. FEMARA [Suspect]
  2. CALCIUM CARBONATE [Concomitant]
  3. FISH OIL [Concomitant]
  4. LIPITOR [Concomitant]
     Dosage: 20 MG, UNK

REACTIONS (5)
  - WHITE BLOOD CELLS URINE POSITIVE [None]
  - HOT FLUSH [None]
  - NEPHROLITHIASIS [None]
  - HAEMATINURIA [None]
  - DYSURIA [None]
